FAERS Safety Report 5485756-1 (Version None)
Quarter: 2007Q4

REPORT INFORMATION
  Report Type: 
  Country: None (occurrence: None)
  Receive Date: 20071015
  Receipt Date: 20071004
  Transmission Date: 20080405
  Serious: Yes (Hospitalization)
  Sender: FDA-Public Use
  Company Number: GB-ROCHE-523248

PATIENT
  Age: 58 Year
  Sex: Female
  Weight: 99.7 kg

DRUGS (7)
  1. ORLISTAT [Suspect]
     Indication: OBESITY
     Route: 048
     Dates: start: 20070410, end: 20070925
  2. ASPIRIN [Concomitant]
     Indication: ANTICOAGULANT THERAPY
     Route: 048
     Dates: end: 20070924
  3. GLUCOSAMINE [Concomitant]
     Indication: ARTHRITIS
     Route: 048
     Dates: end: 20070924
  4. SAGE [Concomitant]
     Dosage: REPORTED AS SAGE SUPPLEMENT
     Route: 048
     Dates: end: 20070924
  5. MULTIVITAMIN NOS [Concomitant]
     Indication: UNEVALUABLE EVENT
     Route: 048
     Dates: end: 20070924
  6. COD LIVER OIL [Concomitant]
     Route: 048
     Dates: end: 20070924
  7. GARLIC [Concomitant]
     Indication: UNEVALUABLE EVENT
     Dosage: REPORTED AS GARLIC SUPPLEMENT
     Route: 048
     Dates: end: 20070924

REACTIONS (4)
  - ABDOMINAL PAIN [None]
  - CHOLELITHIASIS [None]
  - NAUSEA [None]
  - PYREXIA [None]
